FAERS Safety Report 9037435 (Version 1)
Quarter: 2013Q1

REPORT INFORMATION
  Report Type: Spontaneous
  Country: US (occurrence: None)
  Receive Date: 20130115
  Receipt Date: 20130115
  Transmission Date: 20140127
  Serious: Yes (Hospitalization, Other)
  Sender: FDA-Public Use
  Company Number: 2009003066

PATIENT
  Age: 53 Year
  Sex: Female
  Weight: 81 kg

DRUGS (2)
  1. TARCEVA (ERLOTINIB HYDROCHLORIDE) TABLET [Suspect]
     Indication: NON-SMALL CELL LUNG CANCER
     Dosage: UID/QD
     Route: 048
     Dates: start: 20090921
  2. METOPROLOL (METOPROLOL) [Concomitant]

REACTIONS (6)
  - Road traffic accident [None]
  - Rash [None]
  - Joint dislocation [None]
  - Limb injury [None]
  - Visual impairment [None]
  - Mental disorder [None]
